FAERS Safety Report 17727228 (Version 6)
Quarter: 2021Q3

REPORT INFORMATION
  Report Type: Spontaneous
  Country: US (occurrence: US)
  Receive Date: 20200430
  Receipt Date: 20210914
  Transmission Date: 20211014
  Serious: Yes (Other)
  Sender: FDA-Public Use
  Company Number: US-GILEAD-2020-0460881

PATIENT
  Age: 65 Year
  Sex: Female
  Weight: 61.22 kg

DRUGS (30)
  1. VICODIN [Concomitant]
     Active Substance: ACETAMINOPHEN\HYDROCODONE BITARTRATE
  2. SODIUM CHLORIDE. [Concomitant]
     Active Substance: SODIUM CHLORIDE
  3. ATRIPLA [Suspect]
     Active Substance: EFAVIRENZ\EMTRICITABINE\TENOFOVIR DISOPROXIL FUMARATE
     Dosage: UNK
     Route: 048
     Dates: start: 20140317, end: 20151021
  4. MORPHINE [Concomitant]
     Active Substance: MORPHINE
  5. DIMETAPP [BROMPHENIRAMINE MALEATE;PHENYLEPHRINE HYDROCHLORIDE] [Concomitant]
     Active Substance: BROMPHENIRAMINE MALEATE\PHENYLEPHRINE HYDROCHLORIDE
  6. PENICILLIN NOS [Concomitant]
     Active Substance: PENICILLIN
  7. ACETAMINOPHEN. [Concomitant]
     Active Substance: ACETAMINOPHEN
  8. ALPRAZOLAM. [Concomitant]
     Active Substance: ALPRAZOLAM
  9. ROBITUSSIN [DEXTROMETHORPHAN HYDROBROMIDE;ETHANOL;GUAIFENESIN] [Concomitant]
  10. EMTRIVA [Concomitant]
     Active Substance: EMTRICITABINE
     Dosage: UNK
  11. GADOBUTROL. [Concomitant]
     Active Substance: GADOBUTROL
  12. VICKS NYQUIL [Concomitant]
     Active Substance: ACETAMINOPHEN\DEXTROMETHORPHAN HYDROBROMIDE\DOXYLAMINE SUCCINATE
  13. ATRIPLA [Suspect]
     Active Substance: EFAVIRENZ\EMTRICITABINE\TENOFOVIR DISOPROXIL FUMARATE
     Indication: HIV INFECTION
     Dosage: UNK
     Route: 048
     Dates: start: 201403, end: 201510
  14. RETROVIR [Concomitant]
     Active Substance: ZIDOVUDINE
  15. TIVICAY [Concomitant]
     Active Substance: DOLUTEGRAVIR SODIUM
  16. LOVENOX [Concomitant]
     Active Substance: ENOXAPARIN SODIUM
  17. TETRACYCLINE [Concomitant]
     Active Substance: TETRACYCLINE
  18. FUZEON [Concomitant]
     Active Substance: ENFUVIRTIDE
  19. SUSTIVA [Concomitant]
     Active Substance: EFAVIRENZ
  20. VIRACEPT [Concomitant]
     Active Substance: NELFINAVIR MESYLATE
  21. IBUPROFEN. [Concomitant]
     Active Substance: IBUPROFEN
  22. PROTONIX [Concomitant]
     Active Substance: PANTOPRAZOLE SODIUM
  23. NITROSTAT [Concomitant]
     Active Substance: NITROGLYCERIN
  24. COMBIVIR [Concomitant]
     Active Substance: LAMIVUDINE\ZIDOVUDINE
  25. PREZCOBIX [Concomitant]
     Active Substance: COBICISTAT\DARUNAVIR ETHANOLATE
  26. ALEVE [Concomitant]
     Active Substance: NAPROXEN SODIUM
  27. ZOFRAN [Concomitant]
     Active Substance: ONDANSETRON HYDROCHLORIDE
  28. TRUVADA [Suspect]
     Active Substance: EMTRICITABINE\TENOFOVIR DISOPROXIL FUMARATE
     Indication: HIV INFECTION
     Dosage: UNK
     Route: 048
     Dates: start: 20150904, end: 20151021
  29. AMOXICILLIN. [Concomitant]
     Active Substance: AMOXICILLIN
  30. ASPIRIN [ACETYLSALICYLIC ACID] [Concomitant]
     Active Substance: ASPIRIN

REACTIONS (15)
  - Fanconi syndrome acquired [Not Recovered/Not Resolved]
  - Blood creatinine increased [Unknown]
  - Pain [Unknown]
  - Azotaemia [Unknown]
  - Acute kidney injury [Recovered/Resolved]
  - Renal tubular disorder [Unknown]
  - Emotional distress [Unknown]
  - Malaise [Unknown]
  - Chronic kidney disease [Not Recovered/Not Resolved]
  - Renal failure [Not Recovered/Not Resolved]
  - Economic problem [Unknown]
  - Pollakiuria [Not Recovered/Not Resolved]
  - Renal disorder [Unknown]
  - Renal impairment [Unknown]
  - Insomnia [Not Recovered/Not Resolved]

NARRATIVE: CASE EVENT DATE: 20150102
